FAERS Safety Report 7050888-3 (Version None)
Quarter: 2010Q4

REPORT INFORMATION
  Report Type: 
  Country: None (occurrence: None)
  Receive Date: 20101019
  Receipt Date: 20101011
  Transmission Date: 20110411
  Serious: No
  Sender: FDA-Public Use
  Company Number: 2009BI019447

PATIENT
  Age: 51 Year
  Sex: Male

DRUGS (2)
  1. TYSABRI [Suspect]
     Indication: MULTIPLE SCLEROSIS
     Route: 042
     Dates: start: 20090506, end: 20100601
  2. MEDICATION (NOS) [Concomitant]
     Indication: PREMEDICATION

REACTIONS (4)
  - ASTHENIA [None]
  - FEELING COLD [None]
  - PRURITUS [None]
  - URTICARIA [None]
